FAERS Safety Report 21402829 (Version 8)
Quarter: 2024Q4

REPORT INFORMATION
  Report Type: Report from Study
  Country: DE (occurrence: DE)
  Receive Date: 20221003
  Receipt Date: 20241022
  Transmission Date: 20250115
  Serious: Yes (Life-Threatening, Hospitalization, Congenital Anomaly)
  Sender: ROCHE
  Company Number: DE-ROCHE-3190151

PATIENT
  Age: 5 Month
  Sex: Male
  Weight: 3.94 kg

DRUGS (17)
  1. OCRELIZUMAB [Suspect]
     Active Substance: OCRELIZUMAB
     Indication: Product used for unknown indication
     Dosage: DATE OF SECOND ADMINISTRATION 07/OCT/2021
     Route: 064
     Dates: start: 20210923, end: 20211007
  2. FOLIC ACID [Concomitant]
     Active Substance: FOLIC ACID
     Dates: start: 202101, end: 202101
  3. ACETAMINOPHEN [Concomitant]
     Active Substance: ACETAMINOPHEN
     Indication: Prophylaxis
     Dates: start: 20210923, end: 20210923
  4. ACETAMINOPHEN [Concomitant]
     Active Substance: ACETAMINOPHEN
     Dates: start: 20211007, end: 20211007
  5. DIMETHINDENE [Concomitant]
     Active Substance: DIMETHINDENE
     Indication: Prophylaxis
     Dates: start: 20210923, end: 20210923
  6. DIMETHINDENE [Concomitant]
     Active Substance: DIMETHINDENE
     Dates: start: 20211007, end: 20211007
  7. FEMIBION [Concomitant]
     Indication: Prophylaxis
     Dates: start: 20220304, end: 20220624
  8. FEMIBION [Concomitant]
     Dates: start: 202101, end: 202101
  9. CORTISON [Concomitant]
     Dates: start: 20210923, end: 20210923
  10. CORTISON [Concomitant]
     Dates: start: 20211007, end: 20211007
  11. DIPHTHERIA, TETANUS AND ACELLULAR PERTUSSIS [Concomitant]
     Dates: start: 20221021
  12. HAEMOPHILUS INFLUENZAE B VACCINE [Concomitant]
     Dosage: ANOTHER DOSE: 26/JUL/2023
     Dates: start: 20221021
  13. HEPATITIS B VIRUS VACCINE [Concomitant]
     Active Substance: HEPATITIS B VIRUS VACCINE
     Dates: start: 20221021
  14. PNEUMOCOCCAL VACCINE POLYVALENT NOS [Concomitant]
     Active Substance: PNEUMOCOCCAL VACCINE, POLYVALENT
     Dosage: ANOTHER DOSE ON 26/JUL/2023
     Dates: start: 20221021
  15. POLIOMYELITIS VACCINE [Concomitant]
     Active Substance: POLIOMYELITIS VACCINE
     Dosage: ANOTHER DOSE: 26/JUL2023
     Dates: start: 20221021
  16. HUMAN ROTAVIRUS A [Concomitant]
     Active Substance: HUMAN ROTAVIRUS A
     Dosage: 21/NOV/2022
     Dates: start: 20221021
  17. VARICELLA-ZOSTER VIRUS STRAIN OKA/MERCK LIVE ANTIGEN [Concomitant]
     Active Substance: VARICELLA-ZOSTER VIRUS STRAIN OKA/MERCK LIVE ANTIGEN
     Dates: start: 20230823

REACTIONS (4)
  - Neonatal respiratory failure [Recovered/Resolved]
  - Foetal exposure during pregnancy [Unknown]
  - Sepsis [Recovered/Resolved]
  - Congenital choroid plexus cyst [Recovered/Resolved]

NARRATIVE: CASE EVENT DATE: 20220826
